FAERS Safety Report 21233640 (Version 1)
Quarter: 2022Q3

REPORT INFORMATION
  Report Type: Spontaneous
  Country: GB (occurrence: GB)
  Receive Date: 20220819
  Receipt Date: 20220819
  Transmission Date: 20221027
  Serious: Yes (Other)
  Sender: FDA-Public Use
  Company Number: GB-MHRA-MED-202208090323397590-WLGHS

PATIENT
  Age: 32 Year
  Sex: Female
  Weight: 54 kg

DRUGS (2)
  1. OFLOXACIN [Suspect]
     Active Substance: OFLOXACIN
     Indication: Pelvic inflammatory disease
     Dosage: 800 MILLIGRAM DAILY; UNIT DOSE : 400 MG, FREQUENCY : 2 , FREQUENCY TIME : 1 DAYS , THERAPY DURATION
     Route: 065
     Dates: start: 20220808, end: 20220809
  2. METRONIDAZOLE [Concomitant]
     Active Substance: METRONIDAZOLE
     Indication: Infection
     Dates: start: 20220808

REACTIONS (9)
  - Headache [Not Recovered/Not Resolved]
  - Insomnia [Not Recovered/Not Resolved]
  - Paraesthesia [Not Recovered/Not Resolved]
  - Restlessness [Recovering/Resolving]
  - Fatigue [Recovering/Resolving]
  - Dyspnoea [Recovering/Resolving]
  - Musculoskeletal stiffness [Recovering/Resolving]
  - Paranoia [Recovered/Resolved]
  - Maternal exposure during breast feeding [Unknown]
